FAERS Safety Report 17313054 (Version 1)
Quarter: 2020Q1

REPORT INFORMATION
  Report Type: Spontaneous
  Country: US (occurrence: US)
  Receive Date: 20200124
  Receipt Date: 20200124
  Transmission Date: 20200409
  Serious: No
  Sender: FDA-Public Use
  Company Number: US-ZYDUS-043145

PATIENT
  Sex: Female

DRUGS (1)
  1. CHOLESTYRAMINE. [Suspect]
     Active Substance: CHOLESTYRAMINE
     Indication: BOWEL MOVEMENT IRREGULARITY
     Route: 048
     Dates: start: 201910

REACTIONS (4)
  - Drug ineffective for unapproved indication [Not Recovered/Not Resolved]
  - Product use in unapproved indication [Not Recovered/Not Resolved]
  - Product physical consistency issue [Not Recovered/Not Resolved]
  - Product solubility abnormal [Not Recovered/Not Resolved]

NARRATIVE: CASE EVENT DATE: 201910
